FAERS Safety Report 6189743-X (Version None)
Quarter: 2009Q2

REPORT INFORMATION
  Report Type: 
  Country: None (occurrence: None)
  Receive Date: 20090514
  Receipt Date: 20090507
  Transmission Date: 20091009
  Serious: Yes (Other)
  Sender: FDA-Public Use
  Company Number: US-WYE-H09286309

PATIENT
  Age: 60 Year
  Sex: Female

DRUGS (2)
  1. ADVIL [Suspect]
     Indication: ARTHRALGIA
     Route: 048
     Dates: start: 20050101, end: 20050601
  2. ADVIL [Suspect]
     Indication: ANALGESIA
     Route: 048
     Dates: start: 20081101

REACTIONS (4)
  - MYOCARDIAL INFARCTION [None]
  - OVERDOSE [None]
  - SWELLING [None]
  - WEIGHT LOSS POOR [None]
